FAERS Safety Report 9131637 (Version 1)
Quarter: 2013Q1

REPORT INFORMATION
  Report Type: Spontaneous
  Country: US (occurrence: US)
  Receive Date: 20130301
  Receipt Date: 20130301
  Transmission Date: 20140127
  Serious: No
  Sender: FDA-Public Use
  Company Number: US-PFIZER INC-2013069411

PATIENT
  Sex: Male
  Weight: 70.3 kg

DRUGS (2)
  1. TAPAZOLE [Suspect]
     Indication: HYPERTHYROIDISM
     Dosage: 10 MG, 2X/DAY
     Dates: start: 2013
  2. TAPAZOLE [Suspect]
     Dosage: 10 MG, 3X/DAY
     Dates: start: 2013

REACTIONS (1)
  - Goitre [Recovering/Resolving]
